FAERS Safety Report 26048995 (Version 1)
Quarter: 2025Q4

REPORT INFORMATION
  Report Type: Spontaneous
  Country: US (occurrence: US)
  Receive Date: 20251115
  Receipt Date: 20251115
  Transmission Date: 20260118
  Serious: No
  Sender: ALEXION PHARMACEUTICALS
  Company Number: US-AstraZeneca-CH-00992209AP

PATIENT
  Sex: Male

DRUGS (1)
  1. BREZTRI [Suspect]
     Active Substance: BUDESONIDE\FORMOTEROL\GLYCOPYRROLATE
     Dosage: 160 MICROGRAM

REACTIONS (5)
  - Product dispensing error [Unknown]
  - Medication error [Unknown]
  - Device delivery system issue [Unknown]
  - Headache [Unknown]
  - Product dose omission issue [Unknown]
